FAERS Safety Report 8766114 (Version 1)
Quarter: 2012Q4

REPORT INFORMATION
  Report Type: Report from Study
  Country: JP (occurrence: JP)
  Receive Date: 20120904
  Receipt Date: 20120904
  Transmission Date: 20130627
  Serious: Yes (Hospitalization)
  Sender: FDA-Public Use
  Company Number: JP-009507513-1208JPN010276

PATIENT

DRUGS (6)
  1. PEGINTRON [Suspect]
     Indication: HEPATITIS C
     Dosage: 1.5 Microgram per kilogram, qw
     Route: 058
     Dates: start: 20120730, end: 20120731
  2. REBETOL [Suspect]
     Indication: HEPATITIS C
     Dosage: Daily dose unknown
     Route: 048
     Dates: start: 20120730, end: 20120731
  3. TELAVIC [Suspect]
     Indication: HEPATITIS C
     Dosage: Dose: 1500 mg, cumulative dose: 1500 mg
     Route: 048
     Dates: start: 20120730, end: 20120731
  4. CONIEL [Concomitant]
     Indication: PROPHYLAXIS
     Dosage: 4 mg, qd
     Route: 048
     Dates: start: 20100914
  5. PARIET [Concomitant]
     Indication: PROPHYLAXIS
     Dosage: Formulation:Por
     Route: 048
     Dates: start: 20100914
  6. BENET [Concomitant]
     Indication: PROPHYLAXIS
     Dosage: 17.5 mg, qd
     Dates: start: 20100914

REACTIONS (1)
  - Blood pressure decreased [Recovered/Resolved]
